FAERS Safety Report 6671063-8 (Version None)
Quarter: 2010Q2

REPORT INFORMATION
  Report Type: 
  Country: None (occurrence: None)
  Receive Date: 20100407
  Receipt Date: 20100401
  Transmission Date: 20101027
  Serious: Yes (Hospitalization)
  Sender: FDA-Public Use
  Company Number: FR-ASTRAZENECA-2010SE14389

PATIENT
  Age: 23643 Day
  Sex: Female

DRUGS (7)
  1. OMEPRAZOLE [Suspect]
     Route: 048
     Dates: end: 20100126
  2. NOZINAN [Suspect]
     Indication: PSYCHOTIC DISORDER
     Route: 048
     Dates: end: 20100126
  3. LEPTICUR [Suspect]
     Indication: PSYCHOTIC DISORDER
     Route: 048
     Dates: end: 20100126
  4. DEPAKINE CHRONO [Suspect]
     Indication: EPILEPSY
     Route: 048
     Dates: start: 20090520, end: 20100126
  5. LARGACTIL [Suspect]
     Indication: PSYCHOTIC DISORDER
     Route: 048
     Dates: end: 20100126
  6. FORLAX [Concomitant]
     Indication: CONSTIPATION
     Route: 048
  7. LANTUS [Concomitant]
     Indication: TYPE 1 DIABETES MELLITUS
     Route: 058
     Dates: start: 20020101

REACTIONS (2)
  - LYMPHOPENIA [None]
  - THROMBOCYTOPENIA [None]
